APPROVED DRUG PRODUCT: SULINDAC
Active Ingredient: SULINDAC
Strength: 200MG
Dosage Form/Route: TABLET;ORAL
Application: A073039 | Product #001
Applicant: RISING PHARMA HOLDINGS INC
Approved: Jun 22, 1993 | RLD: No | RS: No | Type: DISCN